FAERS Safety Report 6529761-2 (Version None)
Quarter: 2010Q1

REPORT INFORMATION
  Report Type: 
  Country: None (occurrence: None)
  Receive Date: 20100104
  Receipt Date: 20091222
  Transmission Date: 20100710
  Serious: Yes (Hospitalization)
  Sender: FDA-Public Use
  Company Number: 003542

PATIENT
  Sex: Female

DRUGS (9)
  1. ROTIGOTINE [Suspect]
     Indication: PARKINSON'S DISEASE
     Dosage: SEE IMAGE.
     Route: 062
     Dates: start: 20091117, end: 20091124
  2. ROTIGOTINE [Suspect]
     Indication: PARKINSON'S DISEASE
     Dosage: SEE IMAGE.
     Route: 062
     Dates: start: 20091124, end: 20091201
  3. ROTIGOTINE [Suspect]
     Indication: PARKINSON'S DISEASE
     Dosage: SEE IMAGE.
     Route: 062
     Dates: start: 20091201, end: 20091208
  4. ROTIGOTINE [Suspect]
     Indication: PARKINSON'S DISEASE
     Dosage: SEE IMAGE.
     Route: 062
     Dates: start: 20091208, end: 20091214
  5. ROTIGOTINE [Suspect]
     Indication: PARKINSON'S DISEASE
     Dosage: SEE IMAGE.
     Route: 062
     Dates: start: 20091214, end: 20091221
  6. CARBIDOPA-LEVODOPA [Concomitant]
  7. SELEGILINE HYDROCHLORIDE [Concomitant]
  8. ENTACAPONE [Concomitant]
  9. FAMOTIDINE [Concomitant]

REACTIONS (4)
  - ANAEMIA [None]
  - BALANCE DISORDER [None]
  - GASTRIC ULCER HAEMORRHAGE [None]
  - PALLOR [None]
